FAERS Safety Report 7969217-3 (Version None)
Quarter: 2011Q4

REPORT INFORMATION
  Report Type: 
  Country: None (occurrence: None)
  Receive Date: 20111209
  Receipt Date: 20111207
  Transmission Date: 20120403
  Serious: Yes (Hospitalization)
  Sender: FDA-Public Use
  Company Number: DE-ABBOTT-11P-062-0849369-00

PATIENT
  Sex: Female

DRUGS (4)
  1. DRUG FOR HYPERTHYROIDISM [Concomitant]
     Indication: HYPERTHYROIDISM
  2. HUMIRA [Suspect]
     Indication: RHEUMATOID ARTHRITIS
     Route: 058
     Dates: start: 20080730, end: 20110801
  3. ANTIHYPERTENSIVE DRUG [Concomitant]
     Indication: HYPERTENSION
  4. METHOTREXATE [Concomitant]
     Indication: RHEUMATOID ARTHRITIS

REACTIONS (4)
  - CARDIAC FAILURE [None]
  - CARDIAC DISORDER [None]
  - THYROID FUNCTION TEST ABNORMAL [None]
  - PULMONARY OEDEMA [None]
